FAERS Safety Report 11243672 (Version 3)
Quarter: 2020Q2

REPORT INFORMATION
  Report Type: Spontaneous
  Country: US (occurrence: US)
  Receive Date: 20150707
  Receipt Date: 20200629
  Transmission Date: 20200713
  Serious: Yes (Other)
  Sender: FDA-Public Use
  Company Number: US-SA-2015SA095720

PATIENT
  Age: 72 Year
  Sex: Male

DRUGS (7)
  1. METFORMIN [Concomitant]
     Active Substance: METFORMIN HYDROCHLORIDE
     Dosage: UNKNOWN
  2. JANUVIA [Concomitant]
     Active Substance: SITAGLIPTIN PHOSPHATE
     Dosage: UNKNOWN
  3. LANTUS [Suspect]
     Active Substance: INSULIN GLARGINE
     Indication: TYPE 2 DIABETES MELLITUS
     Dosage: 9 IU, QD
     Route: 065
     Dates: start: 201503
  4. GLIPIZIDE. [Concomitant]
     Active Substance: GLIPIZIDE
     Dosage: UNK
  5. LANTUS [Suspect]
     Active Substance: INSULIN GLARGINE
     Dosage: 17 IU, QD (EACH MORNING)
     Route: 065
  6. INSULIN ASPART [Suspect]
     Active Substance: INSULIN ASPART
     Dosage: 12 IU, TID
     Route: 065
  7. INSULIN ASPART [Suspect]
     Active Substance: INSULIN ASPART
     Dosage: 5 IU, TID

REACTIONS (3)
  - Procedural pain [Unknown]
  - Cholecystectomy [Unknown]
  - Blood glucose decreased [Unknown]

NARRATIVE: CASE EVENT DATE: 201506
